FAERS Safety Report 19212185 (Version 1)
Quarter: 2021Q2

REPORT INFORMATION
  Report Type: Spontaneous
  Country: CA (occurrence: CA)
  Receive Date: 20210504
  Receipt Date: 20210504
  Transmission Date: 20210717
  Serious: Yes (Other)
  Sender: FDA-Public Use
  Company Number: CA-MYLANLABS-2021M1025630

PATIENT
  Age: 62 Year
  Sex: Female
  Weight: 65 kg

DRUGS (2)
  1. ESCITALOPRAM [Concomitant]
     Active Substance: ESCITALOPRAM OXALATE
     Dosage: UNK
  2. VANCOMYCIN [Suspect]
     Active Substance: VANCOMYCIN
     Indication: STAPHYLOCOCCAL INFECTION
     Dosage: UNK UNK, BID (1 EVERY 12 HOUR)
     Route: 042

REACTIONS (7)
  - Headache [Unknown]
  - Leukocytosis [Unknown]
  - Nausea [Unknown]
  - Pyrexia [Unknown]
  - Acute kidney injury [Unknown]
  - Malaise [Unknown]
  - Vomiting [Unknown]
